FAERS Safety Report 25737290 (Version 1)
Quarter: 2025Q3

REPORT INFORMATION
  Report Type: Spontaneous
  Country: US (occurrence: US)
  Receive Date: 20250828
  Receipt Date: 20250828
  Transmission Date: 20251021
  Serious: Yes (Hospitalization, Other)
  Sender: MADRIGAL PHARMACEUTICALS
  Company Number: US-MADRIGAL PHARMACEUTICALS, INC-2025REZ6120

PATIENT

DRUGS (27)
  1. REZDIFFRA [Suspect]
     Active Substance: RESMETIROM
     Indication: Metabolic dysfunction-associated steatohepatitis
     Dosage: 80 MILLIGRAM, QD
     Route: 048
     Dates: start: 20240722
  2. REZDIFFRA [Suspect]
     Active Substance: RESMETIROM
     Dosage: 80 MILLIGRAM, QD
     Route: 048
  3. REZDIFFRA [Suspect]
     Active Substance: RESMETIROM
     Dosage: 60 MILLIGRAM, QD
     Route: 048
  4. SOLIFENACIN SUCCINATE [Concomitant]
     Active Substance: SOLIFENACIN SUCCINATE
  5. METOPROLOL SUCCINATE [Concomitant]
     Active Substance: METOPROLOL SUCCINATE
  6. PRASUGREL HYDROCHLORIDE [Concomitant]
     Active Substance: PRASUGREL HYDROCHLORIDE
  7. REPATHA [Concomitant]
     Active Substance: EVOLOCUMAB
  8. CALCITRIOL [Concomitant]
     Active Substance: CALCITRIOL
  9. FLONASE ALLERGY RELIEF [Concomitant]
     Active Substance: FLUTICASONE PROPIONATE
  10. MILK OF MAGNESIA [Concomitant]
     Active Substance: MAGNESIUM HYDROXIDE
  11. ESTRADIOL [Concomitant]
     Active Substance: ESTRADIOL
  12. PREGABALIN [Concomitant]
     Active Substance: PREGABALIN
  13. VITAMIN C [Concomitant]
     Active Substance: ASCORBIC ACID
  14. DIETARY SUPPLEMENT\PROBIOTICS [Concomitant]
     Active Substance: DIETARY SUPPLEMENT\PROBIOTICS NOS
  15. MAGNESIUM [Concomitant]
     Active Substance: MAGNESIUM
  16. MIRALAX [Concomitant]
     Active Substance: POLYETHYLENE GLYCOL 3350
  17. PANTOPRAZOLE SODIUM [Concomitant]
     Active Substance: PANTOPRAZOLE SODIUM
  18. DIAZEPAM [Concomitant]
     Active Substance: DIAZEPAM
  19. FENOFIBRATE [Concomitant]
     Active Substance: FENOFIBRATE
  20. TRULANCE [Concomitant]
     Active Substance: PLECANATIDE
  21. LEVOTHYROXINE SODIUM [Concomitant]
     Active Substance: LEVOTHYROXINE SODIUM
  22. VITAMIN B12 [Concomitant]
     Active Substance: CYANOCOBALAMIN
     Route: 060
  23. ASPIRIN [Concomitant]
     Active Substance: ASPIRIN
  24. VITAMIN E [Concomitant]
     Active Substance: .ALPHA.-TOCOPHEROL
  25. LISINOPRIL [Concomitant]
     Active Substance: LISINOPRIL
  26. EZETIMIBE [Concomitant]
     Active Substance: EZETIMIBE
  27. PLAVIX [Concomitant]
     Active Substance: CLOPIDOGREL BISULFATE

REACTIONS (7)
  - Myocardial infarction [Recovered/Resolved]
  - Dyspnoea [Recovering/Resolving]
  - Weight increased [Unknown]
  - Hunger [Unknown]
  - Constipation [Not Recovered/Not Resolved]
  - Pruritus [Recovered/Resolved]
  - Therapy interrupted [Unknown]

NARRATIVE: CASE EVENT DATE: 20241127
